FAERS Safety Report 16274679 (Version 1)
Quarter: 2019Q2

REPORT INFORMATION
  Report Type: Spontaneous
  Country: DE (occurrence: DE)
  Receive Date: 20190504
  Receipt Date: 20190504
  Transmission Date: 20190711
  Serious: Yes (Other)
  Sender: FDA-Public Use
  Company Number: PHHY2019DE101157

PATIENT
  Age: 46 Year
  Sex: Male

DRUGS (3)
  1. ACICLOVIR [Suspect]
     Active Substance: ACYCLOVIR
     Indication: RETINITIS
     Dosage: 800 MG, BID
     Route: 048
  2. ACICLOVIR [Suspect]
     Active Substance: ACYCLOVIR
     Indication: VARICELLA ZOSTER VIRUS INFECTION
  3. ACICLOVIR [Suspect]
     Active Substance: ACYCLOVIR
     Indication: RETINAL VASCULITIS
     Dosage: 900 MG, TID
     Route: 042

REACTIONS (3)
  - Product use in unapproved indication [Unknown]
  - Necrotising retinitis [Recovering/Resolving]
  - Retinal infiltrates [Recovering/Resolving]
